FAERS Safety Report 7526873 (Version 2)
Quarter: 2012Q4

REPORT INFORMATION
  Report Type: 
  Country: US (occurrence: None)
  Receive Date: 20100721
  Receipt Date: 20120912
  Transmission Date: 20130627
  Serious: Yes (Life-Threatening, Hospitalization, Other)
  Sender: FDA-Public Use
  Company Number: 2010AP001424

PATIENT
  Age: 71 Year
  Sex: Male

DRUGS (7)
  1. AMIODARONE HYDROCHLORIDE [Suspect]
     Indication: ARRHYTHMIA
     Dosage: 150 MG; IV, 1 MG/MIN; Q6H; IV, 0.5 MG/MIN;, 200 MG; BID; PO
     Route: 042
  2. AMIODARONE HYDROCHLORIDE [Suspect]
     Indication: ARRHYTHMIA
     Dosage: 150 MG; IV, 1 MG/MIN; Q6H; IV, 0.5 MG/MIN;, 200 MG; BID; PO
  3. AMIODARONE HYDROCHLORIDE [Suspect]
     Indication: ARRHYTHMIA
     Dosage: 150 MG; IV, 1 MG/MIN; Q6H; IV, 0.5 MG/MIN;, 200 MG; BID; PO
  4. AMIODARONE HYDROCHLORIDE [Suspect]
     Indication: ARRHYTHMIA
     Dosage: 150 MG; IV, 1 MG/MIN; Q6H; IV, 0.5 MG/MIN;, 200 MG; BID; PO
  5. TACROLIMUS [Suspect]
  6. DOBUTAMINE HYDROCHLORIDE [Concomitant]
  7. DIURETICS [Concomitant]

REACTIONS (10)
  - Drug interaction [None]
  - Electrocardiogram QT prolonged [None]
  - Torsade de pointes [None]
  - Ventricular fibrillation [None]
  - Cardiac failure acute [None]
  - Myocardial ischaemia [None]
  - Mitral valve incompetence [None]
  - Cardiac failure congestive [None]
  - Bundle branch block left [None]
  - Ventricular tachycardia [None]
